FAERS Safety Report 8690921 (Version 2)
Quarter: 2013Q4

REPORT INFORMATION
  Report Type: Spontaneous
  Country: US (occurrence: US)
  Receive Date: 20120730
  Receipt Date: 20131107
  Transmission Date: 20140711
  Serious: Yes (Hospitalization)
  Sender: FDA-Public Use
  Company Number: US-009507513-1207USA009818

PATIENT
  Age: 79 Year
  Sex: Male

DRUGS (17)
  1. ZOCOR [Suspect]
     Dosage: 20 MG, QD
     Route: 048
  2. GEMFIBROZIL [Suspect]
     Dosage: 600 MG, UNK
     Route: 048
  3. DOXAZOSIN MESYLATE [Suspect]
     Dosage: 8 MG, QD
     Route: 048
  4. AMLODIPINE BESYLATE [Suspect]
     Dosage: 10 MG, QD
     Route: 048
  5. PROSCAR [Suspect]
     Dosage: 5 MG, QD
     Route: 048
  6. FERROUS SULFATE [Concomitant]
  7. SODIUM POLYSTYRENE SULFONATE [Concomitant]
  8. ASPIRIN [Concomitant]
  9. INSULIN GLARGINE [Concomitant]
  10. ERGOCALCIFEROL [Concomitant]
  11. LACTULOSE [Concomitant]
  12. LEVOTHYROXINE SODIUM [Concomitant]
  13. TRAVOPROST [Concomitant]
  14. HYDRALAZINE [Concomitant]
  15. METOPROLOL [Concomitant]
  16. LISINOPRIL [Concomitant]
  17. FUROSEMIDE [Concomitant]

REACTIONS (17)
  - Renal failure chronic [Unknown]
  - Gait disturbance [Unknown]
  - Myopathy [Unknown]
  - Ileus [Unknown]
  - Drug interaction [Unknown]
  - Iron deficiency anaemia [Unknown]
  - Haemodialysis [Unknown]
  - Erosive duodenitis [Unknown]
  - Paraesthesia [Unknown]
  - Muscular weakness [Unknown]
  - Mitral valve incompetence [Unknown]
  - Tricuspid valve incompetence [Unknown]
  - Abdominal pain [Unknown]
  - Abdominal distension [Unknown]
  - Necrosis [Unknown]
  - Pain in extremity [Unknown]
  - Pain [Unknown]
